FAERS Safety Report 9028601 (Version 2)
Quarter: 2013Q1

REPORT INFORMATION
  Report Type: Spontaneous
  Country: US (occurrence: US)
  Receive Date: 20130124
  Receipt Date: 20130215
  Transmission Date: 20140127
  Serious: Yes (Death, Other)
  Sender: FDA-Public Use
  Company Number: US-ROCHE-1183278

PATIENT
  Sex: Female

DRUGS (12)
  1. ERIVEDGE [Suspect]
     Indication: BASAL CELL CARCINOMA
     Route: 048
     Dates: start: 20120411, end: 20120511
  2. LEXAPRO [Concomitant]
     Indication: DEPRESSION
     Route: 048
  3. LANOXIN [Concomitant]
     Indication: CARDIAC FAILURE CONGESTIVE
     Route: 048
  4. ZEBETA [Concomitant]
     Indication: HYPERTENSION
     Route: 048
  5. LASIX [Concomitant]
     Indication: CARDIAC FAILURE CONGESTIVE
     Route: 048
  6. ARMOUR THYROID [Concomitant]
     Indication: HYPOTHYROIDISM
     Route: 048
  7. ASPIRIN [Concomitant]
     Indication: ATRIAL FIBRILLATION
     Route: 048
  8. BISACODIL [Concomitant]
     Indication: CONSTIPATION
     Route: 065
  9. COLACE [Concomitant]
     Indication: CONSTIPATION
     Route: 048
  10. NAMENDA [Concomitant]
     Indication: DEMENTIA
     Route: 048
  11. POTASSIUM CHLORIDE [Concomitant]
     Indication: HYPOKALAEMIA
     Route: 048
  12. MAGNESIUM OXIDE [Concomitant]
     Indication: MALNUTRITION
     Route: 048

REACTIONS (5)
  - Death [Fatal]
  - Weight decreased [Recovering/Resolving]
  - Decreased appetite [Recovering/Resolving]
  - Fatigue [Recovering/Resolving]
  - Muscle spasms [Unknown]
